FAERS Safety Report 5237214-7 (Version None)
Quarter: 2007Q1

REPORT INFORMATION
  Report Type: 
  Country: None (occurrence: None)
  Receive Date: 20061208
  Receipt Date: 20050321
  Transmission Date: 20070707
  Serious: Yes (Other)
  Sender: FDA-Public Use
  Company Number: 2005UW04480

PATIENT
  Age: 66 Year
  Sex: Female
  Weight: 92.5 kg

DRUGS (5)
  1. CRESTOR [Suspect]
     Indication: BLOOD CHOLESTEROL INCREASED
     Dosage: 10 MG QD PO
     Route: 048
  2. LOTENSIN [Concomitant]
  3. OMEPRAZOLE [Concomitant]
  4. CALCIUM [Concomitant]
  5. VITAMIN B COMPLEX CAP [Concomitant]

REACTIONS (5)
  - CHEST PAIN [None]
  - FATIGUE [None]
  - NERVOUSNESS [None]
  - PAIN IN EXTREMITY [None]
  - PALPITATIONS [None]
